FAERS Safety Report 15478299 (Version 1)
Quarter: 2018Q4

REPORT INFORMATION
  Report Type: Spontaneous
  Country: US (occurrence: US)
  Receive Date: 20181002
  Receipt Date: 20181002
  Transmission Date: 20190205
  Serious: Yes (Other)
  Sender: FDA-Public Use
  Company Number: None

PATIENT
  Age: 55 Year
  Sex: Female
  Weight: 69.75 kg

DRUGS (13)
  1. REMERON [Concomitant]
     Active Substance: MIRTAZAPINE
  2. MAXALT [Concomitant]
     Active Substance: RIZATRIPTAN BENZOATE
  3. RESTORIL [Concomitant]
     Active Substance: TEMAZEPAM
  4. ATIVAN [Concomitant]
     Active Substance: LORAZEPAM
  5. CLARITIN [Concomitant]
     Active Substance: LORATADINE
  6. BYSTOLIC [Concomitant]
     Active Substance: NEBIVOLOL HYDROCHLORIDE
  7. FLORINEF ACETATE [Concomitant]
     Active Substance: FLUDROCORTISONE ACETATE
  8. MICRO K [Concomitant]
  9. VITAMIN D [Concomitant]
     Active Substance: CHOLECALCIFEROL
  10. IRON [Concomitant]
     Active Substance: IRON
  11. MIRTAZAPINE 30MG (GENERIC REMERO1 N) [Suspect]
     Active Substance: MIRTAZAPINE
     Indication: DEPRESSION
     Dosage: ?          QUANTITY:1 TABLET(S);?
     Route: 048
     Dates: start: 20180606, end: 20181002
  12. BUSPAR [Concomitant]
     Active Substance: BUSPIRONE HYDROCHLORIDE
  13. MAGNESIUM [Concomitant]
     Active Substance: MAGNESIUM

REACTIONS (5)
  - Tachycardia [None]
  - Therapeutic response changed [None]
  - Drug ineffective [None]
  - Crying [None]
  - Headache [None]

NARRATIVE: CASE EVENT DATE: 20181002
